FAERS Safety Report 9232896 (Version 2)
Quarter: 2013Q2

REPORT INFORMATION
  Report Type: Spontaneous
  Country: JP (occurrence: JP)
  Receive Date: 20130416
  Receipt Date: 20130429
  Transmission Date: 20140414
  Serious: Yes (Hospitalization)
  Sender: FDA-Public Use
  Company Number: JP-EISAI INC-E2090-02579-SPO-JP

PATIENT
  Age: 58 Year
  Sex: Male

DRUGS (4)
  1. EXCEGRAN [Suspect]
     Indication: EPILEPSY
     Dosage: 400 MG DAILY
     Route: 048
     Dates: end: 20130313
  2. EXCEGRAN [Suspect]
     Dosage: 300 MG DAILY
     Route: 048
     Dates: start: 20130314
  3. ZYPREXA [Concomitant]
     Indication: ALCOHOLISM
     Route: 048
     Dates: start: 20130306
  4. DEPAKENE-R [Concomitant]
     Indication: EPILEPSY
     Route: 048

REACTIONS (2)
  - Hallucination [Recovered/Resolved]
  - Delusion [Recovered/Resolved]
